FAERS Safety Report 12676352 (Version 1)
Quarter: 2016Q3

REPORT INFORMATION
  Report Type: Spontaneous
  Country: BR (occurrence: BR)
  Receive Date: 20160823
  Receipt Date: 20160823
  Transmission Date: 20161109
  Serious: Yes (Other)
  Sender: FDA-Public Use
  Company Number: PHHY2016BR112818

PATIENT
  Sex: Male
  Weight: 67 kg

DRUGS (1)
  1. VOLTAREN [Suspect]
     Active Substance: DICLOFENAC SODIUM
     Indication: NEPHROLITHIASIS
     Dosage: 1 DF, PRN
     Route: 030
     Dates: start: 1994

REACTIONS (4)
  - Renal disorder [Unknown]
  - Product use issue [Unknown]
  - Discomfort [Unknown]
  - Nephrolithiasis [Not Recovered/Not Resolved]

NARRATIVE: CASE EVENT DATE: 1994
